FAERS Safety Report 25264013 (Version 2)
Quarter: 2025Q2

REPORT INFORMATION
  Report Type: Spontaneous
  Country: BR (occurrence: BR)
  Receive Date: 20250502
  Receipt Date: 20250619
  Transmission Date: 20250716
  Serious: Yes (Other)
  Sender: TORRENT PHARMA INC.
  Company Number: BR-TORRENT-00006413

PATIENT
  Age: 57 Year
  Sex: Female
  Weight: 69 kg

DRUGS (6)
  1. LAMOTRIGINE [Suspect]
     Active Substance: LAMOTRIGINE
     Indication: Affective disorder
     Dosage: 1 TABLET IN THE MORNING
     Route: 048
     Dates: start: 20250418, end: 20250419
  2. ASPIRIN [Concomitant]
     Active Substance: ASPIRIN
     Indication: Antiplatelet therapy
     Route: 048
     Dates: start: 202408
  3. ATORVASTATIN [Concomitant]
     Active Substance: ATORVASTATIN
     Indication: Hepatic steatosis
     Dosage: 1 TABLET A DAY
     Route: 048
     Dates: start: 202408
  4. BROMAZEPAM [Concomitant]
     Active Substance: BROMAZEPAM
     Indication: Adjuvant therapy
     Route: 048
     Dates: start: 202404
  5. Escitalopram Drops [Concomitant]
     Indication: Post-traumatic stress disorder
     Route: 048
     Dates: start: 202404
  6. PURAN [Concomitant]
     Active Substance: LEVOTHYROXINE SODIUM
     Indication: Hypothyroidism
     Dosage: 1 TABLET A DAY ON AN EMPTY STOMACH IN THE MORNING
     Route: 048
     Dates: start: 2008

REACTIONS (24)
  - Anaphylactic shock [Recovered/Resolved]
  - Face oedema [Unknown]
  - Dyspnoea [Recovered/Resolved]
  - Asthenia [Recovered/Resolved]
  - Tachycardia [Recovered/Resolved]
  - Blood pressure decreased [Recovered/Resolved]
  - Pruritus [Recovered/Resolved]
  - Eye pruritus [Recovered/Resolved]
  - Swollen tongue [Recovered/Resolved]
  - Laryngeal oedema [Recovered/Resolved]
  - Thirst [Recovered/Resolved]
  - Nausea [Recovered/Resolved]
  - Tremor [Recovered/Resolved]
  - Headache [Not Recovered/Not Resolved]
  - Dizziness [Not Recovered/Not Resolved]
  - Tinnitus [Not Recovered/Not Resolved]
  - Tongue disorder [Recovered/Resolved]
  - Rash [Recovered/Resolved]
  - Myalgia [Recovered/Resolved]
  - Back pain [Recovered/Resolved]
  - Arthralgia [Recovered/Resolved]
  - Hypersensitivity [Recovered/Resolved]
  - Off label use [Unknown]
  - Dysstasia [Unknown]

NARRATIVE: CASE EVENT DATE: 20250418
